FAERS Safety Report 17763986 (Version 1)
Quarter: 2020Q2

REPORT INFORMATION
  Report Type: Spontaneous
  Country: CN (occurrence: CN)
  Receive Date: 20200510
  Receipt Date: 20200510
  Transmission Date: 20200714
  Serious: Yes (Other)
  Sender: FDA-Public Use
  Company Number: CN-BAXTER-2020BAX009553

PATIENT
  Age: 62 Year
  Sex: Female
  Weight: 75 kg

DRUGS (4)
  1. 0.9% SODIUM CHLORIDE INJECTION [Suspect]
     Active Substance: SODIUM CHLORIDE
     Dosage: FIRST CHEMOTHERAPY, EPIRUBICIN HYDROCHLORIDE (PHARMORUBICIN) 150 MG + NS 100ML
     Route: 041
     Dates: start: 20200225, end: 20200225
  2. 0.9% SODIUM CHLORIDE INJECTION [Suspect]
     Active Substance: SODIUM CHLORIDE
     Indication: MEDICATION DILUTION
     Dosage: FIRST CHEMOTHERAPY, CYCLOPHOSPHAMIDE FOR INJECTION 1000 MG + NS 50ML
     Route: 042
     Dates: start: 20200225, end: 20200225
  3. ENDOXAN [Suspect]
     Active Substance: CYCLOPHOSPHAMIDE
     Indication: BREAST CANCER FEMALE
     Dosage: FIRST CHEMOTHERAPY, CYCLOPHOSPHAMIDE 1000 MG + NS 50ML
     Route: 042
     Dates: start: 20200225, end: 20200225
  4. PHARMORUBICIN [Suspect]
     Active Substance: EPIRUBICIN
     Indication: BREAST CANCER FEMALE
     Dosage: FIRST CHEMOTHERAPY, EPIRUBICIN HYDROCHLORIDE 150 MG + NS 100ML
     Route: 041
     Dates: start: 20200225, end: 20200225

REACTIONS (1)
  - Agranulocytosis [Recovered/Resolved]

NARRATIVE: CASE EVENT DATE: 20200306
